FAERS Safety Report 25165955 (Version 1)
Quarter: 2025Q2

REPORT INFORMATION
  Report Type: Spontaneous
  Country: FR (occurrence: FR)
  Receive Date: 20250407
  Receipt Date: 20250407
  Transmission Date: 20250716
  Serious: Yes (Other)
  Sender: CSL BEHRING
  Company Number: None

PATIENT
  Age: 44 Year
  Sex: Female
  Weight: 69 kg

DRUGS (2)
  1. BERINERT [Suspect]
     Active Substance: HUMAN C1-ESTERASE INHIBITOR
     Indication: Transplant rejection
     Route: 042
     Dates: start: 2022
  2. BERINERT [Suspect]
     Active Substance: HUMAN C1-ESTERASE INHIBITOR
     Indication: Transplant rejection
     Route: 042
     Dates: start: 2022

REACTIONS (4)
  - Device related infection [Recovered/Resolved]
  - Enterobacter bacteraemia [Recovered/Resolved]
  - Oral herpes [Recovered/Resolved]
  - Off label use [Unknown]

NARRATIVE: CASE EVENT DATE: 20220101
